FAERS Safety Report 4911577-1 (Version None)
Quarter: 2006Q1

REPORT INFORMATION
  Report Type: 
  Country: None (occurrence: None)
  Receive Date: 20060214
  Receipt Date: 20050421
  Transmission Date: 20060701
  Serious: Yes (Hospitalization, Disabling)
  Sender: FDA-Public Use
  Company Number: US-MERCK-0504USA04241

PATIENT
  Age: 51 Year
  Sex: Female
  Weight: 68 kg

DRUGS (3)
  1. VIOXX [Suspect]
     Indication: ARTHRITIS
     Route: 048
     Dates: start: 19990101, end: 20040901
  2. ADVIL [Concomitant]
     Route: 065
  3. MOTRIN [Concomitant]
     Route: 065

REACTIONS (6)
  - ARTERIAL OCCLUSIVE DISEASE [None]
  - CEREBROVASCULAR ACCIDENT [None]
  - CHEST PAIN [None]
  - CORONARY ARTERY DISEASE [None]
  - INJURY [None]
  - MYOCARDIAL INFARCTION [None]
